FAERS Safety Report 12646042 (Version 3)
Quarter: 2017Q2

REPORT INFORMATION
  Report Type: Spontaneous
  Country: BR (occurrence: BR)
  Receive Date: 20160811
  Receipt Date: 20170613
  Transmission Date: 20170830
  Serious: Yes (Hospitalization)
  Sender: FDA-Public Use
  Company Number: BR-BIOMARINAP-BR-2016-110682

PATIENT
  Age: 14 Year
  Sex: Female
  Weight: 11 kg

DRUGS (14)
  1. ACEBROFYLLINE [Concomitant]
     Indication: PRODUCT USED FOR UNKNOWN INDICATION
     Dosage: 5 ML, TID
  2. ATROVENT [Concomitant]
     Active Substance: IPRATROPIUM BROMIDE
     Indication: DYSPNOEA
     Dosage: 2 GTT, UNK
  3. ATROVENT [Concomitant]
     Active Substance: IPRATROPIUM BROMIDE
     Indication: NAUSEA
  4. PURAN [Concomitant]
     Active Substance: LEVOTHYROXINE SODIUM
     Indication: THYROID DISORDER
     Dosage: UNK, QD
  5. ATROVENT [Concomitant]
     Active Substance: IPRATROPIUM BROMIDE
     Indication: WHEEZING
  6. GROVIT B [Concomitant]
     Indication: VITAMIN SUPPLEMENTATION
     Dosage: 10 ML, QD
  7. NAGLAZYME [Suspect]
     Active Substance: GALSULFASE
     Indication: MUCOPOLYSACCHARIDOSIS VI
     Dosage: 13 MG, QW
     Route: 042
     Dates: start: 20140902
  8. OXCARBAZEPINE. [Concomitant]
     Active Substance: OXCARBAZEPINE
     Indication: SEIZURE
     Dosage: UNK, BID
  9. MONTELUKAST [Concomitant]
     Active Substance: MONTELUKAST SODIUM
     Indication: PREMEDICATION
  10. RANIDINA [Concomitant]
     Indication: PREMEDICATION
  11. OTOSPORIN [Concomitant]
     Active Substance: HYDROCORTISONE\NEOMYCIN SULFATE\POLYMYXIN B SULFATE
     Indication: EAR INFECTION
     Dosage: UNK, TID
  12. NAGLAZYME [Suspect]
     Active Substance: GALSULFASE
     Dosage: 20 MG, QW
     Route: 042
  13. ATROVENT [Concomitant]
     Active Substance: IPRATROPIUM BROMIDE
     Indication: RHINITIS
  14. ENALAPRIL [Concomitant]
     Active Substance: ENALAPRIL
     Indication: PREMEDICATION

REACTIONS (6)
  - Pyrexia [Recovering/Resolving]
  - Infrequent bowel movements [Recovering/Resolving]
  - Gastrointestinal infection [Recovering/Resolving]
  - Weight decreased [Recovered/Resolved]
  - Urinary retention [Recovering/Resolving]
  - Flatulence [Recovering/Resolving]

NARRATIVE: CASE EVENT DATE: 20160802
